FAERS Safety Report 8694984 (Version 3)
Quarter: 2012Q4

REPORT INFORMATION
  Report Type: 
  Country: US (occurrence: US)
  Receive Date: 20120731
  Receipt Date: 20121017
  Transmission Date: 20130627
  Serious: No
  Sender: FDA-Public Use
  Company Number: US-ASTRAZENECA-2012SE49171

PATIENT
  Age: 74 Year
  Sex: Male
  Weight: 90.7 kg

DRUGS (5)
  1. SYMBICORT [Suspect]
     Indication: CHRONIC OBSTRUCTIVE PULMONARY DISEASE
     Dosage: 320MCG BID,2 PUFFS BID
     Route: 055
     Dates: start: 2009
  2. ADVAIR [Suspect]
     Route: 065
  3. SIMVASTATIN [Concomitant]
     Indication: BLOOD CHOLESTEROL ABNORMAL
  4. SPIRVA [Concomitant]
  5. ALBUTEROL [Concomitant]

REACTIONS (3)
  - Blood cholesterol abnormal [Unknown]
  - Drug dose omission [Unknown]
  - Drug hypersensitivity [Recovered/Resolved]
